FAERS Safety Report 25118016 (Version 1)
Quarter: 2025Q1

REPORT INFORMATION
  Report Type: Spontaneous
  Country: JP (occurrence: JP)
  Receive Date: 20250325
  Receipt Date: 20250325
  Transmission Date: 20250408
  Serious: Yes (Hospitalization)
  Sender: PFIZER
  Company Number: JP-PFIZER INC-PV202500033204

PATIENT
  Age: 75 Year
  Sex: Male
  Weight: 57.5 kg

DRUGS (14)
  1. METHYLPREDNISOLONE SODIUM SUCCINATE [Suspect]
     Active Substance: METHYLPREDNISOLONE SODIUM SUCCINATE
     Indication: Cytokine release syndrome
  2. METHYLPREDNISOLONE SODIUM SUCCINATE [Suspect]
     Active Substance: METHYLPREDNISOLONE SODIUM SUCCINATE
  3. METHYLPREDNISOLONE SODIUM SUCCINATE [Suspect]
     Active Substance: METHYLPREDNISOLONE SODIUM SUCCINATE
  4. PREDNISOLONE [Suspect]
     Active Substance: PREDNISOLONE
  5. PREDNISOLONE [Suspect]
     Active Substance: PREDNISOLONE
  6. PREDNISOLONE [Suspect]
     Active Substance: PREDNISOLONE
  7. PREDNISOLONE [Suspect]
     Active Substance: PREDNISOLONE
  8. PREDNISOLONE [Suspect]
     Active Substance: PREDNISOLONE
  9. NIVOLUMAB [Suspect]
     Active Substance: NIVOLUMAB
     Indication: Pleural effusion
  10. IPILIMUMAB [Suspect]
     Active Substance: IPILIMUMAB
     Indication: Pleural effusion
  11. MYCOPHENOLATE MOFETIL [Suspect]
     Active Substance: MYCOPHENOLATE MOFETIL
     Indication: Renal impairment
     Route: 048
  12. PIPERACILLIN SODIUM\TAZOBACTAM SODIUM [Concomitant]
     Active Substance: PIPERACILLIN SODIUM\TAZOBACTAM SODIUM
     Indication: Bacterial infection
  13. MEROPENEM [Concomitant]
     Active Substance: MEROPENEM
  14. TOCILIZUMAB [Concomitant]
     Active Substance: TOCILIZUMAB

REACTIONS (3)
  - Cytokine release syndrome [Unknown]
  - Disease recurrence [Unknown]
  - Off label use [Unknown]
